FAERS Safety Report 6760246-4 (Version None)
Quarter: 2010Q2

REPORT INFORMATION
  Report Type: 
  Country: None (occurrence: None)
  Receive Date: 20100608
  Receipt Date: 20011012
  Transmission Date: 20101027
  Serious: No
  Sender: FDA-Public Use
  Company Number: 2001SUS0925

PATIENT
  Age: 23 Year
  Sex: Female

DRUGS (3)
  1. SUSTIVA [Suspect]
     Indication: HIV INFECTION
     Dosage: UNK UNK
     Route: 048
  2. ZIDOVUDINE [Suspect]
     Indication: HIV INFECTION
     Dosage: AES#DOSE_SP_01: UNKN-600 MG UNK IV/PO
     Dates: end: 20000301
  3. LAMIVUDINE + ZIDOVUDINE [Suspect]
     Indication: HIV INFECTION
     Dosage: 2 UNK
     Route: 048
     Dates: start: 19991215

REACTIONS (2)
  - NORMAL NEWBORN [None]
  - PREGNANCY [None]
